FAERS Safety Report 6937325-1 (Version None)
Quarter: 2010Q3

REPORT INFORMATION
  Report Type: 
  Country: None (occurrence: None)
  Receive Date: 20100823
  Receipt Date: 20100812
  Transmission Date: 20110219
  Serious: Yes (Other)
  Sender: FDA-Public Use
  Company Number: US-TYCO HEALTHCARE/MALLINCKRODT-T201001799

PATIENT
  Sex: Male

DRUGS (9)
  1. OPTIMARK [Suspect]
     Indication: NUCLEAR MAGNETIC RESONANCE IMAGING
     Dosage: 20 ML, SINGLE
     Dates: start: 20070126, end: 20070126
  2. OPTIMARK [Suspect]
     Dosage: 45 ML, SINGLE
     Dates: start: 20070207, end: 20070207
  3. MAGNEVIST [Suspect]
     Indication: NUCLEAR MAGNETIC RESONANCE IMAGING
     Dosage: UNK
     Dates: start: 20031001, end: 20031001
  4. MAGNEVIST [Suspect]
     Dosage: UNK
     Dates: start: 20040323, end: 20040323
  5. MAGNEVIST [Suspect]
     Dosage: UNK
     Dates: start: 20040930, end: 20040930
  6. MAGNEVIST [Suspect]
     Dosage: UNK
     Dates: start: 20050720, end: 20050720
  7. MAGNEVIST [Suspect]
     Dosage: UNK
     Dates: start: 20060111, end: 20060111
  8. MAGNEVIST [Suspect]
     Dosage: 19.5 ML, SINGLE
     Dates: start: 20060627, end: 20060627
  9. MAGNEVIST [Suspect]
     Dosage: 24 ML, SINGLE
     Dates: start: 20061107, end: 20061107

REACTIONS (5)
  - ARTERIAL OCCLUSIVE DISEASE [None]
  - CONTRAINDICATION TO MEDICAL TREATMENT [None]
  - INCORRECT DOSE ADMINISTERED [None]
  - NEPHROGENIC SYSTEMIC FIBROSIS [None]
  - OFF LABEL USE [None]
